FAERS Safety Report 23912735 (Version 2)
Quarter: 2024Q4

REPORT INFORMATION
  Report Type: Spontaneous
  Country: CN (occurrence: CN)
  Receive Date: 20240529
  Receipt Date: 20241225
  Transmission Date: 20250114
  Serious: Yes (Other)
  Sender: STRIDES
  Company Number: None

PATIENT
  Age: 5 Decade
  Sex: Male

DRUGS (19)
  1. MYCOPHENOLATE MOFETIL [Suspect]
     Active Substance: MYCOPHENOLATE MOFETIL
     Indication: Prophylaxis against graft versus host disease
     Dosage: UNK
     Route: 065
     Dates: start: 2019
  2. METHOTREXATE [Suspect]
     Active Substance: METHOTREXATE
     Indication: Prophylaxis against graft versus host disease
     Dosage: UNK
     Route: 065
     Dates: start: 2019
  3. TACROLIMUS [Suspect]
     Active Substance: TACROLIMUS
     Indication: Chronic graft versus host disease in skin
     Dosage: UNK
     Route: 065
     Dates: start: 2019
  4. CYTARABINE [Suspect]
     Active Substance: CYTARABINE
     Indication: Myelodysplastic syndrome with excess blasts
     Dosage: UNK, CYCLICAL (ONE CYCLE)
     Route: 065
     Dates: start: 2019, end: 2019
  5. CYTARABINE [Suspect]
     Active Substance: CYTARABINE
     Indication: Bone marrow conditioning regimen
     Dosage: 2 GRAM PER SQUARE METRE, QD (2 G/M2/ D ON DAYS -12 TO -8)
     Route: 065
     Dates: start: 20190428, end: 2019
  6. BUSULFAN [Suspect]
     Active Substance: BUSULFAN
     Indication: Bone marrow conditioning regimen
     Dosage: 3.2 MILLIGRAM/KILOGRAM, QD (3.2 MG/KG/D ON DAYS -6 TO -4)
     Route: 065
     Dates: start: 20190428, end: 2019
  7. BUSULFAN [Suspect]
     Active Substance: BUSULFAN
     Indication: Myelodysplastic syndrome with excess blasts
  8. THYMOCYTE IMMUNE GLOBULIN NOS [Suspect]
     Active Substance: THYMOCYTE IMMUNE GLOBULIN NOS
     Indication: Myelodysplastic syndrome with excess blasts
     Dosage: 5 MILLIGRAM/KILOGRAM, QD (5 MG/KG/D ON DAYS -3 TO -2)
     Route: 065
     Dates: start: 20190428, end: 2019
  9. THYMOCYTE IMMUNE GLOBULIN NOS [Suspect]
     Active Substance: THYMOCYTE IMMUNE GLOBULIN NOS
     Indication: Bone marrow conditioning regimen
  10. METHYLPREDNISOLONE [Suspect]
     Active Substance: METHYLPREDNISOLONE
     Indication: Prophylaxis against graft versus host disease
     Dosage: UNK
     Route: 065
     Dates: start: 2019
  11. DANAZOL [Suspect]
     Active Substance: DANAZOL
     Indication: Myelodysplastic syndrome with excess blasts
     Dosage: UNK
     Route: 065
     Dates: start: 201901, end: 2019
  12. ACLARUBICIN [Suspect]
     Active Substance: ACLARUBICIN
     Indication: Myelodysplastic syndrome with excess blasts
     Dosage: UNK, CYCLICAL (ONE CYCLE)
     Route: 065
     Dates: start: 201901
  13. CYCLOPHOSPHAMIDE [Suspect]
     Active Substance: CYCLOPHOSPHAMIDE
     Indication: Myelodysplastic syndrome with excess blasts
     Dosage: 1 GRAM PER SQUARE METRE, QD (1 G/M2/D ON DAYS -6 TO -3)
     Route: 065
     Dates: start: 20190428, end: 2019
  14. CYCLOPHOSPHAMIDE [Suspect]
     Active Substance: CYCLOPHOSPHAMIDE
     Indication: Bone marrow conditioning regimen
  15. AZACITIDINE [Suspect]
     Active Substance: AZACITIDINE
     Indication: Myelodysplastic syndrome with excess blasts
     Dosage: UNK, CYCLICAL (ONE CYCLE)
     Route: 065
     Dates: start: 201901
  16. CYCLOSPORINE [Suspect]
     Active Substance: CYCLOSPORINE
     Indication: Prophylaxis against graft versus host disease
     Dosage: UNK
     Route: 048
     Dates: start: 2019
  17. FLUDARABINE [Suspect]
     Active Substance: FLUDARABINE PHOSPHATE
     Indication: Myelodysplastic syndrome with excess blasts
     Dosage: 25 MILLIGRAM/SQ. METER, QD (25 MG/M2/D ON DAYS -12 TO -8)
     Route: 065
     Dates: start: 20190428, end: 2019
  18. FLUDARABINE [Suspect]
     Active Substance: FLUDARABINE PHOSPHATE
     Indication: Bone marrow conditioning regimen
  19. TRETINOIN [Concomitant]
     Active Substance: TRETINOIN
     Indication: Myelodysplastic syndrome with excess blasts
     Dosage: UNK
     Route: 065
     Dates: start: 201901

REACTIONS (5)
  - Hepatitis B [Recovered/Resolved]
  - Pneumonia fungal [Recovered/Resolved]
  - Pneumonia bacterial [Recovered/Resolved]
  - Chronic graft versus host disease in skin [Unknown]
  - Cytomegalovirus infection [Recovered/Resolved]

NARRATIVE: CASE EVENT DATE: 20190101
